FAERS Safety Report 17674965 (Version 1)
Quarter: 2020Q2

REPORT INFORMATION
  Report Type: Spontaneous
  Country: US (occurrence: US)
  Receive Date: 20200416
  Receipt Date: 20200416
  Transmission Date: 20200714
  Serious: Yes (Hospitalization, Other)
  Sender: FDA-Public Use
  Company Number: US-BRISTOL-MYERS SQUIBB COMPANY-BMS-2020-029993

PATIENT
  Sex: Male

DRUGS (1)
  1. SPRYCEL [Suspect]
     Active Substance: DASATINIB
     Indication: BONE MARROW TRANSPLANT
     Dosage: 140 MILLIGRAM DAILY
     Route: 048

REACTIONS (2)
  - Intentional product use issue [Unknown]
  - Bone marrow disorder [Unknown]
